FAERS Safety Report 5145854-9 (Version None)
Quarter: 2006Q4

REPORT INFORMATION
  Report Type: 
  Country: None (occurrence: None)
  Receive Date: 20061108
  Receipt Date: 20060706
  Transmission Date: 20070319
  Serious: Yes (Hospitalization)
  Sender: FDA-Public Use
  Company Number: DE-BAYER-200610900BVD

PATIENT
  Age: 65 Year
  Sex: Male
  Weight: 89 kg

DRUGS (7)
  1. SORAFENIB [Suspect]
     Indication: RENAL CELL CARCINOMA STAGE UNSPECIFIED
     Dosage: TOTAL DAILY DOSE: 800 MG
     Route: 048
     Dates: start: 20060616, end: 20060705
  2. IBUPROFEN [Concomitant]
     Route: 065
     Dates: start: 20060616
  3. NITRENDIPIN [Concomitant]
     Route: 065
     Dates: start: 20051125
  4. DOSS [Concomitant]
     Route: 065
     Dates: start: 20050414
  5. BONDRONAT [Concomitant]
     Route: 042
     Dates: start: 20050715
  6. HYDROCORTISON [Concomitant]
     Route: 065
     Dates: start: 20060418
  7. OMEP [Concomitant]
     Route: 065
     Dates: start: 20060131

REACTIONS (1)
  - GRAND MAL CONVULSION [None]
